FAERS Safety Report 16708288 (Version 1)
Quarter: 2019Q3

REPORT INFORMATION
  Report Type: Spontaneous
  Country: US (occurrence: US)
  Receive Date: 20190816
  Receipt Date: 20190816
  Transmission Date: 20191004
  Serious: No
  Sender: FDA-Public Use
  Company Number: US-AMGEN-USASP2019127177

PATIENT

DRUGS (1)
  1. PROLIA [Suspect]
     Active Substance: DENOSUMAB
     Indication: PRODUCT USED FOR UNKNOWN INDICATION
     Dosage: UNK
     Route: 065

REACTIONS (12)
  - Asthenia [Unknown]
  - Fatigue [Unknown]
  - Infection [Unknown]
  - Pain [Unknown]
  - Dyspnoea [Unknown]
  - Abdominal distension [Unknown]
  - Skin disorder [Unknown]
  - Spinal deformity [Unknown]
  - Mobility decreased [Unknown]
  - Balance disorder [Unknown]
  - Musculoskeletal disorder [Unknown]
  - Decreased activity [Unknown]
